FAERS Safety Report 8538735-1 (Version None)
Quarter: 2012Q3

REPORT INFORMATION
  Report Type: 
  Country: None (occurrence: None)
  Receive Date: 20120726
  Receipt Date: 20120712
  Transmission Date: 20120928
  Serious: Yes (Other)
  Sender: FDA-Public Use
  Company Number: CH-RANBAXY-2012RR-58480

PATIENT
  Age: 32 Year
  Sex: Female

DRUGS (4)
  1. ECLARAN [Suspect]
     Indication: ACNE
     Dosage: UNK
     Route: 062
     Dates: start: 20120328, end: 20120416
  2. NAPROXEN [Suspect]
     Indication: LIGAMENT INJURY
     Dosage: 500 MG, BID
     Route: 048
     Dates: start: 20120325, end: 20120330
  3. IBUPROFEN [Suspect]
     Indication: JOINT DISLOCATION
     Dosage: UNK
     Route: 048
     Dates: start: 20120325, end: 20120330
  4. LOCACID [Suspect]
     Indication: ACNE
     Dosage: UNK
     Route: 062
     Dates: start: 20120328, end: 20120416

REACTIONS (1)
  - MATERNAL EXPOSURE DURING PREGNANCY [None]
